FAERS Safety Report 6451262-0 (Version None)
Quarter: 2009Q4

REPORT INFORMATION
  Report Type: 
  Country: None (occurrence: None)
  Receive Date: 20091120
  Receipt Date: 20091120
  Transmission Date: 20100525
  Serious: Yes (Life-Threatening, Hospitalization)
  Sender: FDA-Public Use
  Company Number: None

PATIENT
  Age: 83 Year
  Sex: Male
  Weight: 97.07 kg

DRUGS (1)
  1. PROPOFOL [Suspect]
     Indication: SURGERY
     Dosage: 8 MG UD IV
     Route: 042
     Dates: start: 20080929, end: 20080929

REACTIONS (6)
  - BRADYCARDIA [None]
  - CARDIO-RESPIRATORY ARREST [None]
  - ELECTROCARDIOGRAM QRS COMPLEX PROLONGED [None]
  - HEART RATE IRREGULAR [None]
  - HYPOTENSION [None]
  - TACHYCARDIA [None]
